FAERS Safety Report 24409724 (Version 1)
Quarter: 2024Q4

REPORT INFORMATION
  Report Type: Spontaneous
  Country: US (occurrence: US)
  Receive Date: 20241008
  Receipt Date: 20241008
  Transmission Date: 20250114
  Serious: Yes (Hospitalization, Other)
  Sender: HIKMA
  Company Number: US-HIKMA PHARMACEUTICALS USA INC.-US-H14001-24-08885

PATIENT

DRUGS (7)
  1. JAKAFI [Suspect]
     Active Substance: RUXOLITINIB
     Dosage: 25 MILLIGRAM, BID
     Route: 065
     Dates: start: 202408
  2. JAKAFI [Suspect]
     Active Substance: RUXOLITINIB
     Indication: Still^s disease
     Dosage: UNKNOWN
     Route: 065
     Dates: start: 202309
  3. MEDROL [Suspect]
     Active Substance: METHYLPREDNISOLONE
     Indication: Still^s disease
     Dosage: UNKNOWN
     Route: 065
  4. PREDNISONE [Suspect]
     Active Substance: PREDNISONE
     Indication: Still^s disease
     Dosage: UNKNOWN
     Route: 065
  5. VOCLOSPORIN [Suspect]
     Active Substance: VOCLOSPORIN
     Indication: Still^s disease
     Dosage: UNKNOWN
     Route: 065
     Dates: start: 202310
  6. KEVZARA [Concomitant]
     Active Substance: SARILUMAB
     Indication: Product used for unknown indication
     Dosage: UNK
     Route: 065
     Dates: start: 202305, end: 202309
  7. VORICONAZOLE [Concomitant]
     Active Substance: VORICONAZOLE
     Indication: Product used for unknown indication
     Dosage: UNKNOWN
     Route: 065

REACTIONS (36)
  - Hypertransaminasaemia [Unknown]
  - Haemophagocytic lymphohistiocytosis [Unknown]
  - Condition aggravated [Unknown]
  - Pyrexia [Unknown]
  - Rash [Unknown]
  - Arthritis [Unknown]
  - Mental status changes [Unknown]
  - Hallucination [Unknown]
  - Drug hypersensitivity [Unknown]
  - Urticaria [Unknown]
  - Nausea [Unknown]
  - Vomiting [Unknown]
  - Diarrhoea [Unknown]
  - Blood immunoglobulin E increased [Unknown]
  - Blood immunoglobulin G increased [Unknown]
  - Blood immunoglobulin M increased [Unknown]
  - Herpes simplex test positive [Unknown]
  - Varicella virus test positive [Unknown]
  - White blood cell count increased [Unknown]
  - Epstein-Barr virus antibody positive [Unknown]
  - Antinuclear antibody positive [Unknown]
  - Antiphospholipid antibodies positive [Unknown]
  - Ligament sprain [Unknown]
  - Hepatosplenomegaly [Unknown]
  - Lymphadenopathy [Unknown]
  - Pleural effusion [Unknown]
  - Leukocytosis [Unknown]
  - Anaemia [Unknown]
  - COVID-19 [Unknown]
  - Gene mutation [Unknown]
  - Yao syndrome [Unknown]
  - Drug reaction with eosinophilia and systemic symptoms [Unknown]
  - Interstitial lung disease [Unknown]
  - Hypotension [Unknown]
  - SARS-CoV-2 antibody test positive [Unknown]
  - Autosomal chromosome anomaly [Unknown]

NARRATIVE: CASE EVENT DATE: 20220801
